FAERS Safety Report 21016138 (Version 1)
Quarter: 2022Q3

REPORT INFORMATION
  Report Type: Report from Study
  Country: BR (occurrence: BR)
  Receive Date: 20220628
  Receipt Date: 20220628
  Transmission Date: 20221027
  Serious: Yes (Hospitalization)
  Sender: FDA-Public Use
  Company Number: BR-NOVARTISPH-NVSC2022BR145950

PATIENT
  Age: 58 Year
  Sex: Female
  Weight: 72 kg

DRUGS (8)
  1. CLOPIDOGREL [Suspect]
     Active Substance: CLOPIDOGREL BISULFATE
     Indication: Myocardial infarction
     Dosage: 1 DOSAGE FORM, QD
     Route: 048
     Dates: start: 202103
  2. ROSUVASTATIN [Suspect]
     Active Substance: ROSUVASTATIN
     Indication: Myocardial infarction
     Dosage: 1 DOSAGE FORM, QD (AT NIGHT)
     Route: 048
     Dates: start: 202103
  3. OMEPRAZOLE [Concomitant]
     Active Substance: OMEPRAZOLE
     Indication: Gastritis
     Dosage: 1 DOSAGE FORM, BID (MORNING AND IN NIGHT) (START DATE: 20 YEARS AGO)
     Route: 048
  4. OMEPRAZOLE [Concomitant]
     Active Substance: OMEPRAZOLE
     Indication: Reflux gastritis
  5. OMEPRAZOLE [Concomitant]
     Active Substance: OMEPRAZOLE
     Indication: Oesophagitis
  6. ENALAPRIL [Concomitant]
     Active Substance: ENALAPRIL
     Indication: Myocardial infarction
     Dosage: 0.5 DOSAGE FORM, QD (IN MORNING)
     Route: 048
     Dates: start: 202103
  7. FUROSEMIDE [Concomitant]
     Active Substance: FUROSEMIDE
     Indication: Myocardial infarction
     Dosage: 3 DOSAGE FORM, BID (2 TABLETS IN THE MORNING AND 1 TABLET AT NIGHT)
     Route: 048
     Dates: start: 202103
  8. BISOPROLOL [Concomitant]
     Active Substance: BISOPROLOL
     Indication: Myocardial infarction
     Dosage: 1.5 DOSAGE FORM, QD (IN MORNING)
     Route: 048
     Dates: start: 202103

REACTIONS (3)
  - Cardiac arrest [Recovered/Resolved]
  - Syncope [Recovered/Resolved]
  - Influenza [Recovered/Resolved]

NARRATIVE: CASE EVENT DATE: 20210301
